FAERS Safety Report 10489616 (Version 1)
Quarter: 2014Q3

REPORT INFORMATION
  Report Type: Spontaneous
  Country: US (occurrence: None)
  Receive Date: 20140908
  Receipt Date: 20140908
  Transmission Date: 20150326
  Serious: Yes (Hospitalization)
  Sender: FDA-Public Use
  Company Number: 402660

PATIENT
  Age: 54 Year
  Sex: Female
  Weight: 107 kg

DRUGS (5)
  1. CRESTOR ( ROSUVASTATIN CALCIUM) [Concomitant]
  2. LOSARTAN ( LOSARTAN) [Concomitant]
  3. METFORMIN [Concomitant]
     Active Substance: METFORMIN HYDROCHLORIDE
  4. HCTZ ( HYDROCHLOROTHIAZIDE) [Concomitant]
  5. VICTOZA [Suspect]
     Active Substance: LIRAGLUTIDE
     Indication: TYPE 2 DIABETES MELLITUS
     Route: 058
     Dates: start: 201304, end: 201401

REACTIONS (2)
  - Weight decreased [None]
  - Pancreatitis [None]

NARRATIVE: CASE EVENT DATE: 20140123
